FAERS Safety Report 17198967 (Version 1)
Quarter: 2019Q4

REPORT INFORMATION
  Report Type: Spontaneous
  Country: US (occurrence: US)
  Receive Date: 20191225
  Receipt Date: 20191225
  Transmission Date: 20200122
  Serious: Yes (Other)
  Sender: FDA-Public Use
  Company Number: US-TEVA-2019-US-1156185

PATIENT
  Age: 28 Year
  Sex: Female

DRUGS (1)
  1. AMOXICILLIN. [Suspect]
     Active Substance: AMOXICILLIN
     Indication: SINUSITIS
     Route: 065

REACTIONS (7)
  - Cardiac flutter [Unknown]
  - Angina pectoris [Unknown]
  - Heart rate increased [Unknown]
  - Hypoaesthesia [Unknown]
  - Product dispensing error [Unknown]
  - Pain in extremity [Unknown]
  - Product label confusion [Unknown]
